FAERS Safety Report 13939512 (Version 3)
Quarter: 2017Q3

REPORT INFORMATION
  Report Type: Spontaneous
  Country: US (occurrence: US)
  Receive Date: 20170906
  Receipt Date: 20170929
  Transmission Date: 20171127
  Serious: No
  Sender: FDA-Public Use
  Company Number: US-PFIZER INC-2017380192

PATIENT
  Age: 28 Year
  Sex: Male

DRUGS (38)
  1. TOBRADEX [Concomitant]
     Active Substance: DEXAMETHASONE\TOBRAMYCIN
     Indication: BLEPHARITIS
     Dosage: UNK UNK, AS NEEDED, [AMT: 1; TIME: BID PRN]
  2. MOTILIUM [Concomitant]
     Active Substance: DOMPERIDONE
     Indication: IMPAIRED GASTRIC EMPTYING
     Dosage: 10 MG, UNK, [AMT: 2; TIME: BID/ TID]
  3. VIAGRA [Suspect]
     Active Substance: SILDENAFIL CITRATE
     Indication: NERVOUS SYSTEM DISORDER
     Dosage: 40 MG, 2X/DAY
     Dates: start: 20170801
  4. VIAGRA [Suspect]
     Active Substance: SILDENAFIL CITRATE
     Indication: PERIPHERAL VENOUS DISEASE
     Dosage: UNK
  5. EMLA [Concomitant]
     Active Substance: LIDOCAINE\PRILOCAINE
     Indication: NECK PAIN
  6. ATIVAN [Concomitant]
     Active Substance: LORAZEPAM
     Indication: MUSCLE SPASMS
     Dosage: 1 MG, 1X/DAY, [AMT: 1; TIME: PM]
  7. CARAFATE [Concomitant]
     Active Substance: SUCRALFATE
     Indication: GASTROOESOPHAGEAL REFLUX DISEASE
     Dosage: 1 G, AS NEEDED, [AMT: 1; TIME: QID PRN]
  8. VIAGRA [Suspect]
     Active Substance: SILDENAFIL CITRATE
     Indication: NEURALGIA
  9. SYNTHROID [Concomitant]
     Active Substance: LEVOTHYROXINE SODIUM
     Indication: HYPOTHYROIDISM
     Dosage: 125 UG, 1X/DAY, [AMT: 1; TIME: AM]
  10. OXICODONE [Concomitant]
     Indication: PAIN
     Dosage: UNK UNK, 2X/DAY, [AMT: 1-2; TIME: BID]
  11. LIORESAL [Concomitant]
     Active Substance: BACLOFEN
     Indication: SLEEP DISORDER
     Dosage: 10 MG, UNK, [AMT: 1; TIME: PM]
  12. ZOFRAN [Concomitant]
     Active Substance: ONDANSETRON HYDROCHLORIDE
     Indication: NAUSEA
     Dosage: 8 MG, AS NEEDED, [AMT: 1; TIME: AM PRN]
  13. ZOFRAN [Concomitant]
     Active Substance: ONDANSETRON HYDROCHLORIDE
     Indication: VOMITING
  14. SILDENAFIL CITRATE. [Suspect]
     Active Substance: SILDENAFIL CITRATE
     Indication: PERIPHERAL COLDNESS
  15. VIAGRA [Suspect]
     Active Substance: SILDENAFIL CITRATE
     Indication: PENIS DISORDER
     Dosage: 20 MG, DAILY
     Dates: start: 20170801
  16. FLOVENT [Concomitant]
     Active Substance: FLUTICASONE PROPIONATE
     Indication: ASTHMA
     Dosage: UNK UNK, AS NEEDED, [AMT: 1; TIME: BID PRN]
  17. TYLENOL [Concomitant]
     Active Substance: ACETAMINOPHEN
     Indication: PAIN
     Dosage: 500 MG, 1X/DAY, [AMT: 1 ; TIME: AM]
  18. LIORESAL [Concomitant]
     Active Substance: BACLOFEN
     Indication: MUSCLE SPASMS
  19. VIAGRA [Suspect]
     Active Substance: SILDENAFIL CITRATE
     Indication: RAYNAUD^S PHENOMENON
     Dosage: 20 MG, 3XDAY
     Dates: end: 20170831
  20. MS CONTIN [Concomitant]
     Active Substance: MORPHINE SULFATE
     Indication: PAIN
     Dosage: 15 MG, 2X/DAY, [AMT: 1; TIME: BID]
  21. NITRO-BID [Concomitant]
     Active Substance: NITROGLYCERIN
     Indication: VASOSPASM
     Dosage: UNK UNK, AS NEEDED
     Route: 061
  22. PROLENSA [Concomitant]
     Active Substance: BROMFENAC SODIUM
     Dosage: UNK
  23. VIAGRA [Suspect]
     Active Substance: SILDENAFIL CITRATE
     Indication: PENIS DISORDER
  24. CALCIUM [Concomitant]
     Active Substance: CALCIUM
     Indication: OSTEOPOROSIS
     Dosage: 400 MG, 1X/DAY, [AMT: 1; TIME: AM]
  25. NASACORT [Concomitant]
     Active Substance: TRIAMCINOLONE ACETONIDE
     Indication: SINUSITIS
     Dosage: UNK UNK, 1X/DAY, [AMT: 1; TIME: PM]
  26. SILDENAFIL CITRATE. [Suspect]
     Active Substance: SILDENAFIL CITRATE
     Indication: VASOSPASM
     Dosage: 60 MG, UNK
  27. SILDENAFIL CITRATE. [Suspect]
     Active Substance: SILDENAFIL CITRATE
     Indication: PENIS DISORDER
  28. VIAGRA [Suspect]
     Active Substance: SILDENAFIL CITRATE
     Indication: VASOSPASM
  29. PRILOSEC [Concomitant]
     Active Substance: OMEPRAZOLE MAGNESIUM
     Indication: GASTROOESOPHAGEAL REFLUX DISEASE
     Dosage: 40 MG, 2X/DAY, [AMT: 1; TIME: BID]
  30. LINZESS [Concomitant]
     Active Substance: LINACLOTIDE
     Dosage: 290 MG, AS NEEDED, [AMT: 1; TIME: AM PRN]
  31. VITAMIN D3 [Concomitant]
     Active Substance: CHOLECALCIFEROL
     Indication: OSTEOPOROSIS
     Dosage: 2000 IU, 1X/DAY, [AMT: 1; TIME: AM]
  32. KENALOG [Concomitant]
     Active Substance: TRIAMCINOLONE ACETONIDE
     Indication: ECZEMA
     Dosage: UNK UNK, AS NEEDED, [TIME: BID PRN]
  33. VOLTAREN [Concomitant]
     Active Substance: DICLOFENAC SODIUM
     Indication: SPONDYLITIS
     Dosage: UNK UNK, 1X/DAY, [AMT: 1 MG; TIME: AM]
  34. VOLTAREN [Concomitant]
     Active Substance: DICLOFENAC SODIUM
     Indication: ARTHRITIS
  35. EMLA [Concomitant]
     Active Substance: LIDOCAINE\PRILOCAINE
     Indication: PAIN IN EXTREMITY
     Dosage: UNK UNK, AS NEEDED, [TIME: PM PRN]
  36. BOIRON [Concomitant]
     Active Substance: ARNICA MONTANA\HERBALS\HOMEOPATHICS
     Indication: PERIPHERAL SWELLING
     Dosage: UNK UNK, AS NEEDED, [TIME: PM PRN]
     Route: 061
  37. NEURONTIN [Concomitant]
     Active Substance: GABAPENTIN
     Indication: NEUROPATHY PERIPHERAL
     Dosage: 400 MG, UNK, [AMT: 3; TIME: BID/TID]
  38. ATIVAN [Concomitant]
     Active Substance: LORAZEPAM
     Indication: SLEEP DISORDER

REACTIONS (11)
  - Product use in unapproved indication [Recovered/Resolved]
  - Condition aggravated [Not Recovered/Not Resolved]
  - Therapeutic response unexpected [Recovered/Resolved]
  - Inflammation [Not Recovered/Not Resolved]
  - Tendonitis [Not Recovered/Not Resolved]
  - Arthritis [Not Recovered/Not Resolved]
  - Erythema [Not Recovered/Not Resolved]
  - Synovitis [Not Recovered/Not Resolved]
  - Myalgia [Not Recovered/Not Resolved]
  - Fatigue [Not Recovered/Not Resolved]
  - Arthralgia [Not Recovered/Not Resolved]

NARRATIVE: CASE EVENT DATE: 20170501
